FAERS Safety Report 7745894-7 (Version None)
Quarter: 2011Q3

REPORT INFORMATION
  Report Type: 
  Country: None (occurrence: None)
  Receive Date: 20110913
  Receipt Date: 20110907
  Transmission Date: 20111222
  Serious: No
  Sender: FDA-Public Use
  Company Number: US-PFIZER INC-2011212045

PATIENT
  Sex: Female

DRUGS (1)
  1. LO/OVRAL-28 [Suspect]
     Dosage: ONCE DAILY

REACTIONS (3)
  - HYPOMENORRHOEA [None]
  - METRORRHAGIA [None]
  - ABNORMAL WITHDRAWAL BLEEDING [None]
